FAERS Safety Report 10469315 (Version 1)
Quarter: 2014Q3

REPORT INFORMATION
  Report Type: Spontaneous
  Country: US (occurrence: None)
  Receive Date: 20140903
  Receipt Date: 20140903
  Transmission Date: 20150326
  Serious: Yes (Hospitalization)
  Sender: FDA-Public Use
  Company Number: 1000064801

PATIENT
  Age: 52 Year
  Sex: Female
  Weight: 73.5 kg

DRUGS (5)
  1. AMPYRA [Suspect]
     Active Substance: DALFAMPRIDINE
     Indication: MULTIPLE SCLEROSIS
     Dosage: (10 MG, 2 IN 1 D)
     Route: 048
     Dates: start: 20121109, end: 2013
  2. BACLOFEN (BACLOFEN) [Suspect]
     Active Substance: BACLOFEN
     Dosage: 1 IN 1 D
     Route: 048
     Dates: start: 201208
  3. TYSABRI [Concomitant]
     Active Substance: NATALIZUMAB
  4. CELEXA [Suspect]
     Active Substance: CITALOPRAM HYDROBROMIDE
     Indication: DEPRESSION
     Dosage: 1 IN 1 D
     Route: 048
     Dates: end: 201308
  5. CLONAZEPAM. [Concomitant]
     Active Substance: CLONAZEPAM

REACTIONS (3)
  - Intentional overdose [None]
  - Convulsion [None]
  - Suicide attempt [None]

NARRATIVE: CASE EVENT DATE: 20130726
